FAERS Safety Report 7718701-6 (Version None)
Quarter: 2011Q3

REPORT INFORMATION
  Report Type: 
  Country: None (occurrence: None)
  Receive Date: 20110830
  Receipt Date: 20110818
  Transmission Date: 20111222
  Serious: Yes (Other)
  Sender: FDA-Public Use
  Company Number: CA-ELI_LILLY_AND_COMPANY-CA201108005754

PATIENT
  Sex: Female

DRUGS (8)
  1. ZYPREXA [Suspect]
     Dosage: 7.5 MG, UNKNOWN
  2. ATIVAN [Concomitant]
  3. BENZTROPINE MESYLATE [Concomitant]
  4. SLOW-FE [Concomitant]
  5. ZYPREXA [Suspect]
     Dosage: 2.5 MG, UNKNOWN
  6. CALCIUM CARBONATE [Concomitant]
  7. ZYPREXA [Suspect]
     Dosage: 10 MG, UNKNOWN
  8. ZYPREXA [Suspect]
     Dosage: 5 MG, UNKNOWN

REACTIONS (7)
  - PLATELET COUNT INCREASED [None]
  - ATRIAL FIBRILLATION [None]
  - VAGINAL HAEMORRHAGE [None]
  - DIABETES MELLITUS [None]
  - WEIGHT INCREASED [None]
  - BLOOD GLUCOSE INCREASED [None]
  - BLOOD TRIGLYCERIDES INCREASED [None]
